FAERS Safety Report 13284290 (Version 5)
Quarter: 2017Q3

REPORT INFORMATION
  Report Type: Spontaneous
  Country: US (occurrence: US)
  Receive Date: 20170301
  Receipt Date: 20170718
  Transmission Date: 20171127
  Serious: Yes (Hospitalization)
  Sender: FDA-Public Use
  Company Number: US-B.I. PHARMACEUTICALS,INC./RIDGEFIELD-2017-BI-010952

PATIENT
  Age: 70 Year
  Sex: Female
  Weight: 139.7 kg

DRUGS (1)
  1. SPIRIVA [Suspect]
     Active Substance: TIOTROPIUM BROMIDE MONOHYDRATE
     Indication: CHRONIC OBSTRUCTIVE PULMONARY DISEASE
     Dosage: ADMINISTRATION CORRECT? NR (NOT REPORTED)
     Route: 055
     Dates: start: 20170216, end: 20170323

REACTIONS (5)
  - Product physical issue [Unknown]
  - Drug ineffective [Unknown]
  - Pneumonia [Unknown]
  - Product quality issue [Unknown]
  - Cardiac failure congestive [Recovered/Resolved]

NARRATIVE: CASE EVENT DATE: 20170216
